FAERS Safety Report 7661312 (Version 3)
Quarter: 2013Q4

REPORT INFORMATION
  Report Type: Spontaneous
  Country: US (occurrence: US)
  Receive Date: 20101109
  Receipt Date: 20131219
  Transmission Date: 20140711
  Serious: Yes (Hospitalization, Other)
  Sender: FDA-Public Use
  Company Number: US-BAYER-201039810NA

PATIENT
  Age: 20 Year
  Sex: Female
  Weight: 95.24 kg

DRUGS (3)
  1. YASMIN [Suspect]
     Indication: DYSMENORRHOEA
     Dosage: UNK
     Dates: start: 200608, end: 20090109
  2. PAXIL [Concomitant]
     Indication: ANXIETY
  3. TOPAMAX [Concomitant]

REACTIONS (5)
  - Gallbladder disorder [Unknown]
  - Weight increased [None]
  - Abdominal pain [None]
  - Drug hypersensitivity [None]
  - Biliary dyskinesia [None]
